FAERS Safety Report 13134198 (Version 1)
Quarter: 2017Q1

REPORT INFORMATION
  Report Type: Spontaneous
  Country: US (occurrence: US)
  Receive Date: 20170120
  Receipt Date: 20170120
  Transmission Date: 20170428
  Serious: No
  Sender: FDA-Public Use
  Company Number: US-PFIZER INC-2017024297

PATIENT

DRUGS (2)
  1. IBUPROFEN. [Concomitant]
     Active Substance: IBUPROFEN
     Dosage: UNK
  2. ADVIL SINUS CONGESTION AND PAIN [Suspect]
     Active Substance: IBUPROFEN\PHENYLEPHRINE HYDROCHLORIDE
     Indication: NASAL CONGESTION
     Dosage: 1 DF, DAILY

REACTIONS (1)
  - Drug effect incomplete [Unknown]
